FAERS Safety Report 18625286 (Version 2)
Quarter: 2021Q3

REPORT INFORMATION
  Report Type: Spontaneous
  Country: IT (occurrence: IT)
  Receive Date: 20201216
  Receipt Date: 20210803
  Transmission Date: 20211014
  Serious: Yes (Other)
  Sender: FDA-Public Use
  Company Number: IT-MYLANLABS-2020M1102147

PATIENT
  Age: 77 Year
  Sex: Female

DRUGS (6)
  1. ALENDRONATE [Suspect]
     Active Substance: ALENDRONATE SODIUM
     Indication: OSTEOPOROSIS
     Dosage: 1 DOSAGE FORM, QW, 1 TABLET, QW
     Route: 048
     Dates: start: 2005, end: 2010
  2. DENOSUMAB [Suspect]
     Active Substance: DENOSUMAB
     Indication: OSTEOPOROSIS
     Dosage: STRENGTH 1FL. 1 DF EVERY 6 MONTHS (1 VIAL/6 MONTHS)
     Route: 065
     Dates: start: 2016, end: 2019
  3. PROLIA [Suspect]
     Active Substance: DENOSUMAB
     Indication: PRODUCT USED FOR UNKNOWN INDICATION
     Dosage: 1 DOSAGE FORM, 1 VIAL, 6 MONTHLY
     Route: 030
     Dates: start: 2016, end: 2018
  4. BONVIVA [Suspect]
     Active Substance: IBANDRONATE SODIUM
     Indication: OSTEOPOROSIS
     Dosage: 1 DOSAGE FORM, MONTHLY, 1 TABLET PER MONTH
     Dates: start: 2011, end: 2015
  5. IBANDRONATE [Suspect]
     Active Substance: IBANDRONATE SODIUM
     Indication: OSTEOPOROSIS
     Dosage: UNK
     Dates: start: 2010, end: 2015
  6. CORTISONE [Suspect]
     Active Substance: CORTISONE
     Indication: MYALGIA
     Dosage: UNK
     Dates: start: 2016

REACTIONS (3)
  - Pain [Recovered/Resolved]
  - Fistula [Recovered/Resolved]
  - Osteonecrosis of jaw [Recovered/Resolved with Sequelae]

NARRATIVE: CASE EVENT DATE: 201805
